FAERS Safety Report 4401669-8 (Version None)
Quarter: 2004Q3

REPORT INFORMATION
  Report Type: 
  Country: None (occurrence: None)
  Receive Date: 20040719
  Receipt Date: 20040601
  Transmission Date: 20050211
  Serious: Yes (Other)
  Sender: FDA-Public Use
  Company Number: US-GLAXOSMITHKLINE-A0512875A

PATIENT
  Age: 35 Year
  Sex: Female

DRUGS (2)
  1. VALTREX [Suspect]
     Route: 048
     Dates: start: 20040427
  2. NO CONCURRENT MEDICATION [Concomitant]

REACTIONS (3)
  - BACK PAIN [None]
  - MEDICATION ERROR [None]
  - NEPHROLITHIASIS [None]
